FAERS Safety Report 7440523 (Version 6)
Quarter: 2014Q3

REPORT INFORMATION
  Report Type: Report from Study
  Country: US (occurrence: US)
  Receive Date: 20100629
  Receipt Date: 20140828
  Transmission Date: 20150326
  Serious: Yes (Hospitalization)
  Sender: FDA-Public Use
  Company Number: US-BIOGENIDEC-2010BI020436

PATIENT
  Age: 22 Year
  Sex: Female
  Weight: 83 kg

DRUGS (6)
  1. TRIVORA [Concomitant]
     Active Substance: ETHINYL ESTRADIOL\LEVONORGESTREL
     Route: 048
     Dates: start: 20140718
  2. METAXALONE. [Concomitant]
     Active Substance: METAXALONE
  3. CITALOPRAM [Concomitant]
     Active Substance: CITALOPRAM HYDROBROMIDE
  4. TYSABRI [Suspect]
     Active Substance: NATALIZUMAB
     Indication: MULTIPLE SCLEROSIS
     Route: 042
     Dates: start: 20100520
  5. TIZANIDINE [Concomitant]
     Active Substance: TIZANIDINE
  6. BACLOFEN. [Concomitant]
     Active Substance: BACLOFEN

REACTIONS (6)
  - Fatigue [Unknown]
  - Ankle fracture [Not Recovered/Not Resolved]
  - Lower limb fracture [Recovered/Resolved]
  - Central venous catheter removal [Unknown]
  - Gait disturbance [Not Recovered/Not Resolved]
  - Fall [Recovered/Resolved]

NARRATIVE: CASE EVENT DATE: 201005
